FAERS Safety Report 14391326 (Version 1)
Quarter: 2018Q1

REPORT INFORMATION
  Report Type: Spontaneous
  Country: US (occurrence: US)
  Receive Date: 20180112
  Receipt Date: 20180112
  Transmission Date: 20180509
  Serious: Yes (Other)
  Sender: FDA-Public Use
  Company Number: None

PATIENT
  Age: 35 Year
  Sex: Male

DRUGS (1)
  1. STIVARGA [Suspect]
     Active Substance: REGORAFENIB
     Indication: COLON CANCER
     Dosage: FREQUENCY - DAILY FOR 21 DAYS
     Route: 048
     Dates: start: 20170921

REACTIONS (3)
  - Stomatitis [None]
  - Erythema [None]
  - Ulcer [None]

NARRATIVE: CASE EVENT DATE: 20171227
